FAERS Safety Report 5351725-5 (Version None)
Quarter: 2007Q2

REPORT INFORMATION
  Report Type: 
  Country: None (occurrence: None)
  Receive Date: 20070521
  Receipt Date: 20070222
  Transmission Date: 20071010
  Serious: No
  Sender: FDA-Public Use
  Company Number: WAES 0702USA04103

PATIENT
  Age: 47 Year
  Sex: Male

DRUGS (6)
  1. JANUVIA [Suspect]
     Indication: DIABETES MELLITUS NON-INSULIN-DEPENDENT
     Dosage: 100 MG/ DAILY/ PO
     Route: 048
  2. AMARYL [Concomitant]
  3. AVANDIA [Concomitant]
  4. ENALAPRIL MALEATE [Concomitant]
  5. INSULIN [Concomitant]
  6. METFORMIN [Concomitant]

REACTIONS (2)
  - NAUSEA [None]
  - VOMITING [None]
